FAERS Safety Report 10045299 (Version 1)
Quarter: 2014Q1

REPORT INFORMATION
  Report Type: Other
  Country: SE (occurrence: SE)
  Receive Date: 20140328
  Receipt Date: 20140328
  Transmission Date: 20141002
  Serious: Yes (Other)
  Sender: FDA-Public Use
  Company Number: SE-BRISTOL-MYERS SQUIBB COMPANY-20580106

PATIENT
  Age: 5 Year
  Sex: Female

DRUGS (1)
  1. IFOSFAMIDE [Suspect]
     Indication: EWING^S SARCOMA
     Dosage: 1DF = 102G/M2

REACTIONS (1)
  - Ovarian disorder [Unknown]
